FAERS Safety Report 16819713 (Version 2)
Quarter: 2019Q3

REPORT INFORMATION
  Report Type: Spontaneous
  Country: JP (occurrence: JP)
  Receive Date: 20190917
  Receipt Date: 20190924
  Transmission Date: 20191005
  Serious: Yes (Hospitalization)
  Sender: FDA-Public Use
  Company Number: PHJP2019JP011466

PATIENT
  Age: 55 Year
  Sex: Male

DRUGS (1)
  1. COSENTYX [Suspect]
     Active Substance: SECUKINUMAB
     Indication: PUSTULOTIC ARTHRO-OSTEITIS
     Dosage: 300 MG, UNK
     Route: 058
     Dates: start: 20160308, end: 201611

REACTIONS (4)
  - Henoch-Schonlein purpura [Recovered/Resolved]
  - Purpura [Unknown]
  - Hypersensitivity vasculitis [Unknown]
  - Blood blister [Unknown]

NARRATIVE: CASE EVENT DATE: 20161130
